FAERS Safety Report 11501947 (Version 2)
Quarter: 2016Q3

REPORT INFORMATION
  Report Type: Spontaneous
  Country: US (occurrence: US)
  Receive Date: 20150914
  Receipt Date: 20160811
  Transmission Date: 20161109
  Serious: Yes (Hospitalization, Other)
  Sender: FDA-Public Use
  Company Number: US-TEVA-592603USA

PATIENT
  Age: 59 Day
  Sex: Male

DRUGS (4)
  1. PROGLYCEM SUSPENSION [Suspect]
     Active Substance: DIAZOXIDE
     Indication: HYPERINSULINISM
     Dosage: 10 MG/KG/DAY DIVIDED INTO THREE EQUAL DOSES, THEN 9 MG/KG/DAY
     Route: 065
  2. PROGLYCEM SUSPENSION [Suspect]
     Active Substance: DIAZOXIDE
     Indication: HYPERINSULINISM
     Dosage: 9 MG/KG/DAY DIVIDED INTO THREE EQUAL DOSES, THEN 8 MG/KG/DAY
     Route: 065
  3. URSODIOL DISULFATE [Concomitant]
     Indication: HYPERINSULINISM
     Dosage: 26 MG/KG/DAY
     Route: 065
  4. PROGLYCEM SUSPENSION [Suspect]
     Active Substance: DIAZOXIDE
     Indication: HYPERINSULINISM
     Dosage: 8 MG/KG/DAY DIVIDED INTO THREE EQUAL DOSES
     Route: 065

REACTIONS (8)
  - Hyponatraemia [Recovered/Resolved]
  - Cardiopulmonary failure [Recovered/Resolved]
  - Hyperbilirubinaemia [Recovered/Resolved]
  - Hypoalbuminaemia [Recovered/Resolved]
  - Hypothermia [Recovered/Resolved]
  - Hepatomegaly [Recovered/Resolved]
  - Hyperglycaemia [Recovered/Resolved]
  - Pulmonary hypertension [Recovered/Resolved]
